FAERS Safety Report 5335525-8 (Version None)
Quarter: 2007Q2

REPORT INFORMATION
  Report Type: 
  Country: None (occurrence: None)
  Receive Date: 20070525
  Receipt Date: 20070516
  Transmission Date: 20071010
  Serious: Yes (Hospitalization, Other)
  Sender: FDA-Public Use
  Company Number: BR-PFIZER INC-2007040784

PATIENT
  Sex: Male

DRUGS (4)
  1. XALATAN [Suspect]
     Indication: GLAUCOMA
     Route: 031
  2. RAMIPRIL [Concomitant]
  3. ACETYLSALICYLIC ACID SRT [Concomitant]
  4. DOXAZOSIN MESYLATE [Concomitant]
     Dates: start: 20010101

REACTIONS (2)
  - CATARACT [None]
  - EYE LASER SURGERY [None]
